FAERS Safety Report 16067016 (Version 1)
Quarter: 2019Q1

REPORT INFORMATION
  Report Type: Spontaneous
  Country: US (occurrence: US)
  Receive Date: 20190212
  Receipt Date: 20190212
  Transmission Date: 20190418
  Serious: No
  Sender: FDA-Public Use
  Company Number: None

PATIENT
  Age: 51 Year
  Sex: Male

DRUGS (1)
  1. SYMDEKO [Suspect]
     Active Substance: IVACAFTOR\TEZACAFTOR
     Dates: start: 201803

REACTIONS (2)
  - Infective pulmonary exacerbation of cystic fibrosis [None]
  - Product dose omission [None]

NARRATIVE: CASE EVENT DATE: 20181212
